FAERS Safety Report 11002767 (Version 3)
Quarter: 2015Q2

REPORT INFORMATION
  Report Type: Spontaneous
  Country: None (occurrence: US)
  Receive Date: 20150408
  Receipt Date: 20150529
  Transmission Date: 20150821
  Serious: Yes (Hospitalization, Other)
  Sender: FDA-Public Use
  Company Number: US-TEVA-552809USA

PATIENT
  Sex: Female

DRUGS (2)
  1. ESTROGENS CONJUGATED [Suspect]
     Active Substance: ESTROGENS, CONJUGATED
     Dosage: .03  DAILY;
     Route: 065
     Dates: start: 1990
  2. PREMARIN [Suspect]
     Active Substance: ESTROGENS, CONJUGATED
     Route: 065

REACTIONS (6)
  - Loss of consciousness [Recovered/Resolved]
  - Hyperhidrosis [Recovered/Resolved]
  - Drug hypersensitivity [Recovered/Resolved]
  - Blood pressure decreased [Recovered/Resolved]
  - Wheezing [Unknown]
  - Urticaria [Unknown]

NARRATIVE: CASE EVENT DATE: 1990
